FAERS Safety Report 5670043-9 (Version None)
Quarter: 2008Q1

REPORT INFORMATION
  Report Type: 
  Country: None (occurrence: None)
  Receive Date: 20080312
  Receipt Date: 20080225
  Transmission Date: 20080703
  Serious: No
  Sender: FDA-Public Use
  Company Number: 8030271

PATIENT
  Age: 12 Year
  Sex: Male
  Weight: 50 kg

DRUGS (3)
  1. METHYLPHENIDATE HCL [Suspect]
     Dosage: 40 MG 1/D
     Dates: start: 20070426
  2. ALLERGODIL [Concomitant]
  3. ZADITEN [Concomitant]

REACTIONS (3)
  - FATIGUE [None]
  - HYPOTONIA [None]
  - TIC [None]
